FAERS Safety Report 25034802 (Version 3)
Quarter: 2025Q2

REPORT INFORMATION
  Report Type: Report from Study
  Country: US (occurrence: US)
  Receive Date: 20250304
  Receipt Date: 20250624
  Transmission Date: 20250717
  Serious: Yes (Hospitalization, Other)
  Sender: ROCHE
  Company Number: US-ROCHE-10000215688

PATIENT
  Age: 82 Year
  Sex: Male

DRUGS (1)
  1. ACTEMRA ACTPEN [Suspect]
     Active Substance: TOCILIZUMAB
     Indication: Giant cell arteritis
     Dosage: INJECT THE CONTENTS OF ONE DEVICE UNDER THE SKIN EVERY TWO WEEKS (EVERY 14 DAYS)
     Route: 058

REACTIONS (4)
  - Oedema [Unknown]
  - Neoplasm malignant [Unknown]
  - Eye disorder [Unknown]
  - Drug ineffective [Unknown]
